FAERS Safety Report 9463361 (Version 1)
Quarter: 2013Q3

REPORT INFORMATION
  Report Type: Spontaneous
  Country: US (occurrence: US)
  Receive Date: 20130819
  Receipt Date: 20130819
  Transmission Date: 20140515
  Serious: No
  Sender: FDA-Public Use
  Company Number: US-BIOGENIDEC-2013BI075894

PATIENT
  Sex: Female

DRUGS (5)
  1. AVONEX [Suspect]
     Indication: MULTIPLE SCLEROSIS
     Route: 030
     Dates: start: 20090219
  2. PRILOSEC [Concomitant]
  3. VIACTIV MULTI-VITAMIN [Concomitant]
  4. GABAPENTIN [Concomitant]
  5. CO ENZYME Q-10 [Concomitant]

REACTIONS (2)
  - Burning sensation [Unknown]
  - Pruritus [Unknown]
